FAERS Safety Report 13650988 (Version 1)
Quarter: 2017Q2

REPORT INFORMATION
  Report Type: Spontaneous
  Country: CA (occurrence: CA)
  Receive Date: 20170614
  Receipt Date: 20170614
  Transmission Date: 20170830
  Serious: Yes (Other)
  Sender: FDA-Public Use
  Company Number: CA-PFIZER INC-2017253756

PATIENT
  Age: 51 Year
  Sex: Female

DRUGS (1)
  1. LYRICA [Suspect]
     Active Substance: PREGABALIN
     Dosage: UNK

REACTIONS (6)
  - Swelling face [Unknown]
  - Pruritus [Unknown]
  - Eye swelling [Unknown]
  - Thermal burn [Unknown]
  - Skin exfoliation [Unknown]
  - Blister [Unknown]

NARRATIVE: CASE EVENT DATE: 2017
